FAERS Safety Report 6245676-1 (Version None)
Quarter: 2009Q2

REPORT INFORMATION
  Report Type: 
  Country: None (occurrence: None)
  Receive Date: 20090625
  Receipt Date: 20090616
  Transmission Date: 20091009
  Serious: Yes (Hospitalization, Disabling, Other)
  Sender: FDA-Public Use
  Company Number: FR-ABBOTT-09P-056-0580403-00

PATIENT
  Sex: Female
  Weight: 80 kg

DRUGS (8)
  1. HUMIRA [Suspect]
     Indication: RHEUMATOID ARTHRITIS
     Route: 058
     Dates: start: 20040204, end: 20090501
  2. CORDARONE [Concomitant]
     Indication: ARRHYTHMIA
  3. COTAREG [Concomitant]
     Indication: HYPERTENSION
  4. ATENOLOL [Concomitant]
     Indication: HYPERTENSION
  5. LASTOID [Concomitant]
     Indication: HYPERTENSION
  6. LOSDLEPAT [Concomitant]
     Indication: HYPERLIPIDAEMIA
  7. PYOSTACINE [Concomitant]
     Indication: SEPSIS
     Dates: start: 20090101
  8. HUMIRA [Concomitant]
     Route: 058
     Dates: start: 20031022, end: 20040204

REACTIONS (3)
  - DEVICE RELATED INFECTION [None]
  - HAEMATOMA [None]
  - STAPHYLOCOCCAL INFECTION [None]
